FAERS Safety Report 10057062 (Version 2)
Quarter: 2014Q2

REPORT INFORMATION
  Report Type: Spontaneous
  Country: US (occurrence: US)
  Receive Date: 20140403
  Receipt Date: 20140501
  Transmission Date: 20141212
  Serious: Yes (Death)
  Sender: FDA-Public Use
  Company Number: US-TEVA-472529USA

PATIENT
  Sex: Female

DRUGS (7)
  1. FENTANYL CITRATE [Suspect]
     Indication: PRODUCT USED FOR UNKNOWN INDICATION
     Route: 048
  2. DEXAMETHAZON [Concomitant]
  3. LEVOTHYROXINE [Concomitant]
  4. NEXIUM [Concomitant]
  5. POTASSIUM [Concomitant]
  6. CALCIUM [Concomitant]
  7. CARAFATE [Concomitant]

REACTIONS (1)
  - Cardiac amyloidosis [Fatal]
